FAERS Safety Report 18635571 (Version 1)
Quarter: 2020Q4

REPORT INFORMATION
  Report Type: Report from Study
  Country: US (occurrence: US)
  Receive Date: 20201218
  Receipt Date: 20201218
  Transmission Date: 20210114
  Serious: No
  Sender: FDA-Public Use
  Company Number: US-REGENERON PHARMACEUTICALS, INC.-2020-26885

PATIENT

DRUGS (1)
  1. EYLEA [Suspect]
     Active Substance: AFLIBERCEPT
     Indication: DRY AGE-RELATED MACULAR DEGENERATION
     Dosage: 2 MG 0.05ML SDV INTO RIGHT EYE
     Route: 031
     Dates: start: 20200206

REACTIONS (3)
  - Ocular discomfort [Not Recovered/Not Resolved]
  - Eye pain [Recovered/Resolved]
  - Off label use [Unknown]

NARRATIVE: CASE EVENT DATE: 20200316
